FAERS Safety Report 17807661 (Version 1)
Quarter: 2020Q2

REPORT INFORMATION
  Report Type: Spontaneous
  Country: US (occurrence: US)
  Receive Date: 20200520
  Receipt Date: 20200520
  Transmission Date: 20200714
  Serious: No
  Sender: FDA-Public Use
  Company Number: None

PATIENT
  Sex: Female

DRUGS (1)
  1. ENBREL [Suspect]
     Active Substance: ETANERCEPT
     Indication: PALMOPLANTAR PUSTULOSIS
     Dosage: ?          OTHER FREQUENCY:EVERY7DAYS;?
     Route: 058
     Dates: start: 20170511

REACTIONS (2)
  - Therapy interrupted [None]
  - Pneumonia [None]
